FAERS Safety Report 20381358 (Version 1)
Quarter: 2022Q1

REPORT INFORMATION
  Report Type: Spontaneous
  Country: GB (occurrence: GB)
  Receive Date: 20220127
  Receipt Date: 20220127
  Transmission Date: 20220423
  Serious: Yes (Hospitalization)
  Sender: FDA-Public Use
  Company Number: GB-JNJFOC-20211033820

PATIENT
  Age: 51 Year
  Sex: Male
  Weight: 106.7 kg

DRUGS (1)
  1. SIMPONI [Suspect]
     Active Substance: GOLIMUMAB
     Indication: Behcet^s syndrome
     Route: 058

REACTIONS (3)
  - Skin ulcer [Unknown]
  - Off label use [Unknown]
  - Product use in unapproved indication [Unknown]
